FAERS Safety Report 8587500-8 (Version None)
Quarter: 2012Q3

REPORT INFORMATION
  Report Type: 
  Country: None (occurrence: None)
  Receive Date: 20120810
  Receipt Date: 20120809
  Transmission Date: 20120928
  Serious: Yes (Other)
  Sender: FDA-Public Use
  Company Number: CA-MERCK-2012SP031215

PATIENT

DRUGS (1)
  1. SAPHRIS [Suspect]
     Indication: BIPOLAR DISORDER
     Dosage: 5 MG, UNK
     Route: 060
     Dates: start: 20120402, end: 20120514

REACTIONS (4)
  - CONVULSION [None]
  - UNDERDOSE [None]
  - INFECTIOUS MONONUCLEOSIS [None]
  - LIVER FUNCTION TEST ABNORMAL [None]
